FAERS Safety Report 26046192 (Version 1)
Quarter: 2025Q4

REPORT INFORMATION
  Report Type: Report from Study
  Country: US (occurrence: US)
  Receive Date: 20251114
  Receipt Date: 20251114
  Transmission Date: 20260117
  Serious: Yes (Other)
  Sender: TAKEDA
  Company Number: US-TAKEDA-2025TUS100527

PATIENT
  Age: 72 Year
  Sex: Female

DRUGS (1)
  1. VEDOLIZUMAB [Suspect]
     Active Substance: VEDOLIZUMAB
     Indication: Product used for unknown indication
     Dosage: UNK

REACTIONS (14)
  - Proctitis ulcerative [Unknown]
  - Rectal haemorrhage [Unknown]
  - Abdominal pain lower [Unknown]
  - Hiatus hernia [Unknown]
  - Gastrointestinal mucosa hyperaemia [Unknown]
  - Gastrooesophageal reflux disease [Unknown]
  - Diarrhoea [Unknown]
  - Iron deficiency anaemia [Unknown]
  - Dysphagia [Unknown]
  - Abdominal pain [Unknown]
  - Haemorrhoids [Unknown]
  - Dyspepsia [Unknown]
  - Constipation [Unknown]
  - Abdominal distension [Unknown]
